FAERS Safety Report 19850297 (Version 4)
Quarter: 2021Q4

REPORT INFORMATION
  Report Type: Report from Study
  Country: ES (occurrence: ES)
  Receive Date: 20210917
  Receipt Date: 20211006
  Transmission Date: 20220303
  Serious: Yes (Death, Life-Threatening, Hospitalization, Other)
  Sender: FDA-Public Use
  Company Number: ES-BRISTOL-MYERS SQUIBB COMPANY-BMS-2021-094307

PATIENT
  Age: 69 Year
  Sex: Male
  Weight: 62 kg

DRUGS (15)
  1. RELATLIMAB [Suspect]
     Active Substance: RELATLIMAB
     Indication: Non-small cell lung cancer
     Dosage: 100 MILLILITER
     Route: 042
     Dates: start: 20210903, end: 20210903
  2. NIVOLUMAB [Suspect]
     Active Substance: NIVOLUMAB
     Indication: Non-small cell lung cancer
     Dosage: 100 MILLILITER
     Route: 042
     Dates: start: 20210903, end: 20210903
  3. CARBOPLATIN [Suspect]
     Active Substance: CARBOPLATIN
     Indication: Non-small cell lung cancer
     Dosage: 480 MILLIGRAM
     Route: 065
     Dates: start: 20210903, end: 20210903
  4. PACLITAXEL [Suspect]
     Active Substance: PACLITAXEL
     Indication: Non-small cell lung cancer
     Dosage: 340 MILLIGRAM
     Route: 065
     Dates: start: 20210903, end: 20210903
  5. FENTANYL [Concomitant]
     Active Substance: FENTANYL
     Indication: Product used for unknown indication
     Dosage: 50 MICROGRAM, EVERY 3 DAYS
     Route: 062
  6. FENTANYL [Concomitant]
     Active Substance: FENTANYL
     Dosage: 200 MICROGRAM, 6 TIMES DAILY
     Route: 060
  7. DEXAMETHASONE [Concomitant]
     Active Substance: DEXAMETHASONE
     Indication: Product used for unknown indication
     Dosage: 6 MILLIGRAM, BID
     Route: 048
  8. DEXAMETHASONE [Concomitant]
     Active Substance: DEXAMETHASONE
     Dosage: 4 MILLIGRAM, QD
     Route: 048
     Dates: start: 20210902, end: 20210904
  9. OMEPRAZOLE [Concomitant]
     Active Substance: OMEPRAZOLE
     Indication: Product used for unknown indication
     Dosage: 20 MILLIGRAM, QD
     Route: 048
  10. PREGABALIN [Concomitant]
     Active Substance: PREGABALIN
     Indication: Product used for unknown indication
     Dosage: 75 MILLIGRAM, BID
     Route: 048
  11. SITAGLIPTIN [Concomitant]
     Active Substance: SITAGLIPTIN
     Indication: Product used for unknown indication
     Dosage: 100 MILLIGRAM, QD
     Route: 048
  12. LACTULOSE [Concomitant]
     Active Substance: LACTULOSE
     Indication: Product used for unknown indication
     Dosage: 1 DOSAGE FORM=3 UNITS NOS, QD
     Route: 048
  13. LORMETAZEPAM [Concomitant]
     Active Substance: LORMETAZEPAM
     Indication: Product used for unknown indication
     Dosage: 2 MILLIGRAM, QD
     Route: 048
  14. COVID-19 VACCINE [Concomitant]
     Indication: Prophylaxis
     Dosage: UNK
     Route: 030
     Dates: start: 20210507, end: 20210507
  15. COVID-19 VACCINE [Concomitant]
     Dosage: UNK
     Route: 030
     Dates: start: 20210528, end: 20210528

REACTIONS (1)
  - Neutropenic sepsis [Fatal]

NARRATIVE: CASE EVENT DATE: 20210910
